FAERS Safety Report 4825400-7 (Version None)
Quarter: 2005Q4

REPORT INFORMATION
  Report Type: 
  Country: None (occurrence: None)
  Receive Date: 20051109
  Receipt Date: 20051017
  Transmission Date: 20060501
  Serious: Yes (Hospitalization)
  Sender: FDA-Public Use
  Company Number: HQWY397512SEP05_1

PATIENT
  Age: 52 Year
  Sex: Male

DRUGS (6)
  1. ESANBUTOL (ETHAMBUTOL, TABLET) [Suspect]
     Indication: MYCOBACTERIUM AVIUM COMPLEX INFECTION
     Dosage: SEE IMAGE
     Dates: start: 19940101, end: 19990101
  2. ESANBUTOL (ETHAMBUTOL, TABLET) [Suspect]
     Indication: MYCOBACTERIUM AVIUM COMPLEX INFECTION
     Dosage: SEE IMAGE
     Dates: start: 19990101, end: 20020101
  3. ACYCLOVIR [Concomitant]
  4. BROTIZOLAM [Concomitant]
  5. FLUCONAZOLE [Concomitant]
  6. SULFAMETHOXAZOLE + TRIMETHOPRIM [Concomitant]

REACTIONS (1)
  - CHOLECYSTITIS [None]
